FAERS Safety Report 8028452 (Version 2)
Quarter: 2012Q4

REPORT INFORMATION
  Report Type: 
  Country: US (occurrence: US)
  Receive Date: 20110711
  Receipt Date: 20120911
  Transmission Date: 20130627
  Serious: No
  Sender: FDA-Public Use
  Company Number: US-B.I. PHARMACEUTICALS,INC./RIDGEFIELD-2011-BP-15957BP

PATIENT
  Age: 83 Year
  Sex: Female

DRUGS (14)
  1. PRADAXA [Suspect]
     Indication: ATRIAL FIBRILLATION
     Dosage: 300 mg
     Route: 048
     Dates: start: 20110527
  2. ASPIRIN [Concomitant]
     Indication: CARDIAC DISORDER
     Dosage: 81 mg
     Route: 048
     Dates: start: 200812
  3. VITAMIN D [Concomitant]
     Indication: SUPPLEMENTATION THERAPY
     Dosage: 2000 MU
     Route: 048
     Dates: start: 20120416
  4. LENOXIN [Concomitant]
     Indication: ATRIAL FIBRILLATION
     Route: 048
  5. LISINOPRIL [Concomitant]
     Indication: HYPERTENSION
     Dosage: 12.5 mg
     Route: 048
  6. IRON [Concomitant]
     Indication: BLOOD IRON DECREASED
     Route: 048
     Dates: start: 2008
  7. LEVOTHYROXINE [Concomitant]
     Indication: HYPOTHYROIDISM
     Dosage: 0.125 mg
     Route: 048
  8. DILTIAZEM [Concomitant]
     Indication: HYPERTENSION
     Dosage: 180 mg
     Route: 048
  9. LIVALO [Concomitant]
     Indication: SUPPLEMENTATION THERAPY
     Dosage: 2 mg
     Route: 048
     Dates: start: 20101115
  10. PROPRANOLOL [Concomitant]
     Indication: CARDIAC DISORDER
     Dosage: 120 mg
     Route: 048
  11. SYNTHROID [Concomitant]
     Indication: THYROID DISORDER
     Dosage: 15 mcg
     Route: 048
     Dates: start: 2008
  12. OMEPRAZOLE [Concomitant]
     Indication: GASTROOESOPHAGEAL REFLUX DISEASE
     Dosage: 20 mg
     Route: 048
     Dates: start: 2008
  13. FISH OIL [Concomitant]
     Indication: CARDIAC DISORDER
     Dosage: 4000 mg
     Route: 048
     Dates: start: 2008
  14. AMLODIPINE [Concomitant]
     Dosage: 5 mg
     Route: 048
     Dates: start: 20120831

REACTIONS (5)
  - Dysuria [Not Recovered/Not Resolved]
  - Micturition urgency [Not Recovered/Not Resolved]
  - Pollakiuria [Not Recovered/Not Resolved]
  - Diarrhoea [Not Recovered/Not Resolved]
  - Nausea [Recovered/Resolved]
